FAERS Safety Report 13893013 (Version 1)
Quarter: 2017Q3

REPORT INFORMATION
  Report Type: Spontaneous
  Country: US (occurrence: US)
  Receive Date: 20170822
  Receipt Date: 20170822
  Transmission Date: 20171127
  Serious: No
  Sender: FDA-Public Use
  Company Number: US-ROCHE-1167605

PATIENT
  Age: 62 Year
  Sex: Female
  Weight: 55.39 kg

DRUGS (5)
  1. ABRAXANE [Suspect]
     Active Substance: PACLITAXEL
     Indication: PRODUCT USED FOR UNKNOWN INDICATION
     Route: 065
  2. TAXOTERE [Concomitant]
     Active Substance: DOCETAXEL
  3. HERCEPTIN [Suspect]
     Active Substance: TRASTUZUMAB
     Indication: BREAST CANCER METASTATIC
     Route: 065
  4. PERJETA [Suspect]
     Active Substance: PERTUZUMAB
     Indication: PRODUCT USED FOR UNKNOWN INDICATION
     Route: 065
  5. GEMZAR [Concomitant]
     Active Substance: GEMCITABINE HYDROCHLORIDE

REACTIONS (4)
  - Peripheral swelling [Unknown]
  - Alopecia [Unknown]
  - Urinary tract disorder [Unknown]
  - Drug effect decreased [Unknown]
